FAERS Safety Report 6689394-4 (Version None)
Quarter: 2010Q2

REPORT INFORMATION
  Report Type: 
  Country: None (occurrence: None)
  Receive Date: 20100419
  Receipt Date: 20100419
  Transmission Date: 20101027
  Serious: Yes (Other)
  Sender: FDA-Public Use
  Company Number: None

PATIENT
  Age: 58 Year
  Sex: Female
  Weight: 77.1115 kg

DRUGS (2)
  1. OMEPRAZOLE [Suspect]
     Indication: GASTROOESOPHAGEAL REFLUX DISEASE
     Dosage: 1 PILL DURING DINNER DAILY
     Dates: start: 20100329, end: 20100401
  2. FAST RELIEF ANTACID LIQUID 1 TABLESPOON BEFORE EATING CVS PHARMACY 851 [Suspect]
     Dosage: 1 TABLESPOON 4-5 TIMES DAILY
     Dates: start: 20100329, end: 20100405

REACTIONS (5)
  - DEHYDRATION [None]
  - DRY SKIN [None]
  - OVERDOSE [None]
  - RASH ERYTHEMATOUS [None]
  - SKIN DISORDER [None]
